FAERS Safety Report 11770587 (Version 2)
Quarter: 2015Q4

REPORT INFORMATION
  Report Type: Spontaneous
  Country: IT (occurrence: IT)
  Receive Date: 20151123
  Receipt Date: 20151202
  Transmission Date: 20160304
  Serious: Yes (Hospitalization, Other)
  Sender: FDA-Public Use
  Company Number: PHHY2015IT148278

PATIENT
  Age: 30 Year
  Sex: Male

DRUGS (2)
  1. LORAZEPAM. [Suspect]
     Active Substance: LORAZEPAM
     Indication: DRUG ABUSE
     Dosage: 3 DF
     Route: 048
     Dates: start: 20151030, end: 20151030
  2. LEPONEX [Suspect]
     Active Substance: CLOZAPINE
     Indication: DRUG ABUSE
     Dosage: 1200 MG
     Route: 048
     Dates: start: 20151030, end: 20151030

REACTIONS (7)
  - Generalised tonic-clonic seizure [Unknown]
  - Overdose [Unknown]
  - Epilepsy [Unknown]
  - Off label use [Unknown]
  - Urinary incontinence [Unknown]
  - Spinal fracture [Unknown]
  - Drug abuse [Unknown]

NARRATIVE: CASE EVENT DATE: 20151030
